FAERS Safety Report 25883510 (Version 3)
Quarter: 2025Q4

REPORT INFORMATION
  Report Type: Spontaneous
  Country: EG (occurrence: EG)
  Receive Date: 20251006
  Receipt Date: 20251016
  Transmission Date: 20260117
  Serious: Yes (Other)
  Sender: TAKEDA
  Company Number: EG-JNJFOC-20250942335

PATIENT
  Age: 74 Year
  Sex: Female

DRUGS (5)
  1. VELCADE [Suspect]
     Active Substance: BORTEZOMIB
     Indication: Plasma cell myeloma
     Dosage: 0.9 MILLIGRAM, 1/WEEK
     Dates: start: 2025, end: 202509
  2. VELCADE [Suspect]
     Active Substance: BORTEZOMIB
     Dosage: UNK
  3. DEXAMETHASONE [Suspect]
     Active Substance: DEXAMETHASONE
     Indication: Plasma cell myeloma
     Dosage: UNK
  4. LENALIDOMIDE [Suspect]
     Active Substance: LENALIDOMIDE
     Indication: Plasma cell myeloma
     Dosage: UNK
  5. SULFAMETHOXAZOLE\TRIMETHOPRIM [Suspect]
     Active Substance: SULFAMETHOXAZOLE\TRIMETHOPRIM
     Indication: Product used for unknown indication
     Dosage: UNK

REACTIONS (4)
  - Drug ineffective [Unknown]
  - Thrombocytopenia [Recovered/Resolved]
  - Haemoglobin decreased [Not Recovered/Not Resolved]
  - Decreased immune responsiveness [Recovered/Resolved]
